FAERS Safety Report 7308973-4 (Version None)
Quarter: 2011Q1

REPORT INFORMATION
  Report Type: 
  Country: None (occurrence: None)
  Receive Date: 20110223
  Receipt Date: 20101228
  Transmission Date: 20110831
  Serious: Yes (Hospitalization, Other)
  Sender: FDA-Public Use
  Company Number: US-BAYER-201028167NA

PATIENT
  Sex: Female
  Weight: 90.703 kg

DRUGS (2)
  1. NAPROXEN [Concomitant]
     Indication: PRODUCT USED FOR UNKNOWN INDICATION
  2. OCELLA [Suspect]
     Indication: MENSTRUAL DISORDER
     Route: 048
     Dates: start: 20090601, end: 20090901

REACTIONS (6)
  - DEEP VEIN THROMBOSIS [None]
  - PAIN IN EXTREMITY [None]
  - PULMONARY EMBOLISM [None]
  - SYNCOPE [None]
  - MENTAL DISORDER [None]
  - COUGH [None]
